FAERS Safety Report 9383911 (Version 2)
Quarter: 2013Q3

REPORT INFORMATION
  Report Type: Spontaneous
  Country: BE (occurrence: BE)
  Receive Date: 20130705
  Receipt Date: 20130802
  Transmission Date: 20140515
  Serious: Yes (Other)
  Sender: FDA-Public Use
  Company Number: BE-AMGEN-BELSP2013042931

PATIENT
  Sex: Male
  Weight: 79 kg

DRUGS (9)
  1. XGEVA [Suspect]
     Indication: PRODUCT USED FOR UNKNOWN INDICATION
     Dosage: 1 AMP
     Route: 030
     Dates: start: 20130615
  2. TICLID [Concomitant]
  3. CORTISONE [Concomitant]
  4. ZESTRIL [Concomitant]
  5. LASIX                              /00032601/ [Concomitant]
  6. LIPITOR [Concomitant]
  7. ZITHROMAX [Concomitant]
  8. STEOVIT D3 [Concomitant]
  9. ASAFLOW [Concomitant]

REACTIONS (4)
  - Fibula fracture [Recovered/Resolved]
  - Incorrect route of drug administration [Unknown]
  - Fall [Unknown]
  - Syncope [Unknown]
